FAERS Safety Report 9261812 (Version 1)
Quarter: 2013Q2

REPORT INFORMATION
  Report Type: Spontaneous
  Country: RU (occurrence: RU)
  Receive Date: 20130429
  Receipt Date: 20130429
  Transmission Date: 20140414
  Serious: Yes (Other)
  Sender: FDA-Public Use
  Company Number: RU-BAXTER-2013BAX014919

PATIENT
  Age: 32 Year
  Sex: Male

DRUGS (1)
  1. REKOMBINAT 250 ME [Suspect]
     Indication: PRODUCT USED FOR UNKNOWN INDICATION
     Route: 065

REACTIONS (1)
  - Coagulation factor decreased [Not Recovered/Not Resolved]
